FAERS Safety Report 16874167 (Version 2)
Quarter: 2019Q4

REPORT INFORMATION
  Report Type: Report from Study
  Country: JP (occurrence: JP)
  Receive Date: 20191001
  Receipt Date: 20191108
  Transmission Date: 20200122
  Serious: Yes (Hospitalization)
  Sender: FDA-Public Use
  Company Number: JP-EISAI MEDICAL RESEARCH-EC-2019-062812

PATIENT
  Age: 43 Year
  Sex: Male
  Weight: 61 kg

DRUGS (20)
  1. CLONAZEPAM. [Concomitant]
     Active Substance: CLONAZEPAM
  2. FYCOMPA [Suspect]
     Active Substance: PERAMPANEL
     Route: 048
     Dates: start: 20180131, end: 20180424
  3. FYCOMPA [Suspect]
     Active Substance: PERAMPANEL
     Route: 048
     Dates: start: 20180914, end: 20180924
  4. FYCOMPA [Suspect]
     Active Substance: PERAMPANEL
     Route: 048
     Dates: start: 20181106, end: 20181113
  5. FLUNITRAZEPAM [Concomitant]
     Active Substance: FLUNITRAZEPAM
  6. FYCOMPA [Suspect]
     Active Substance: PERAMPANEL
     Route: 048
     Dates: start: 20181101, end: 20181105
  7. LACOSAMIDE. [Concomitant]
     Active Substance: LACOSAMIDE
  8. FYCOMPA [Suspect]
     Active Substance: PERAMPANEL
     Route: 048
     Dates: start: 20180425, end: 20180913
  9. FYCOMPA [Suspect]
     Active Substance: PERAMPANEL
     Route: 048
     Dates: start: 20180925, end: 20181001
  10. FYCOMPA [Suspect]
     Active Substance: PERAMPANEL
     Route: 048
     Dates: start: 20181002, end: 20181031
  11. PHENYTOIN. [Concomitant]
     Active Substance: PHENYTOIN
  12. NITRAZEPAM [Concomitant]
     Active Substance: NITRAZEPAM
  13. ALFAROL [Concomitant]
     Active Substance: ALFACALCIDOL
  14. FYCOMPA [Suspect]
     Active Substance: PERAMPANEL
     Indication: EPILEPSY
     Route: 048
     Dates: start: 20171128, end: 20171212
  15. SODIUM VALPROATE [Concomitant]
     Active Substance: VALPROATE SODIUM
  16. DIAZEPAM. [Concomitant]
     Active Substance: DIAZEPAM
  17. LANSOPRAZOLE. [Concomitant]
     Active Substance: LANSOPRAZOLE
  18. FYCOMPA [Suspect]
     Active Substance: PERAMPANEL
     Indication: PARTIAL SEIZURES
     Route: 048
     Dates: start: 20171213, end: 20180130
  19. FYCOMPA [Suspect]
     Active Substance: PERAMPANEL
     Route: 048
     Dates: start: 20181114, end: 20181221
  20. FYCOMPA [Suspect]
     Active Substance: PERAMPANEL
     Route: 048
     Dates: start: 20181222

REACTIONS (1)
  - Seizure cluster [Recovered/Resolved]

NARRATIVE: CASE EVENT DATE: 20180912
